FAERS Safety Report 4804907-2 (Version None)
Quarter: 2005Q4

REPORT INFORMATION
  Report Type: 
  Country: None (occurrence: None)
  Receive Date: 20051017
  Receipt Date: 20051004
  Transmission Date: 20060501
  Serious: Yes (Hospitalization, Other)
  Sender: FDA-Public Use
  Company Number: 2005RR-00888

PATIENT
  Age: 36 Year
  Sex: Female

DRUGS (9)
  1. ETODOLAC [Suspect]
     Indication: SYSTEMIC LUPUS ERYTHEMATOSUS
     Dosage: 600 MG, QD, ORAL
     Route: 048
  2. AZATHIOPRINE [Suspect]
     Indication: SYSTEMIC LUPUS ERYTHEMATOSUS
     Dosage: 100 MG, QD, ORAL
     Route: 048
     Dates: start: 20030101
  3. ERYTHROMYCIN STEARATE [Suspect]
     Indication: FURUNCLE
     Dosage: 500 MG, BID, ORAL
     Route: 048
  4. YASMIN [Suspect]
     Indication: ORAL CONTRACEPTION
     Dosage: 1 UNK, QD, ORAL
     Route: 048
  5. YASMIN [Suspect]
     Indication: ORAL CONTRACEPTION
     Dosage: 1 UNK, QD, ORAL
     Route: 048
  6. HYDROXYCHLOROQUINE SULFATE [Suspect]
     Indication: SYSTEMIC LUPUS ERYTHEMATOSUS
     Dosage: 400 MG, QD, ORAL
     Route: 048
  7. OMEPRAZOLE [Concomitant]
  8. LORATADINE [Concomitant]
  9. DIHYDROCODEINE [Concomitant]

REACTIONS (1)
  - PANCREATITIS [None]
